FAERS Safety Report 18101782 (Version 1)
Quarter: 2020Q3

REPORT INFORMATION
  Report Type: Spontaneous
  Country: US (occurrence: CA)
  Receive Date: 20200802
  Receipt Date: 20200802
  Transmission Date: 20201103
  Serious: No
  Sender: FDA-Public Use
  Company Number: US-IPSEN BIOPHARMACEUTICALS, INC.-2020-13280

PATIENT
  Age: 49 Year
  Sex: Female

DRUGS (4)
  1. CABERGOLINE. [Concomitant]
     Active Substance: CABERGOLINE
  2. LEVOTHYROXINE SODIUM (SYNTHROID) [Concomitant]
  3. OCTREOTIDE. [Concomitant]
     Active Substance: OCTREOTIDE
  4. SOMATULINE AUTOGEL [Suspect]
     Active Substance: LANREOTIDE ACETATE
     Indication: ACROMEGALY
     Dosage: NOT REPORTED
     Route: 065

REACTIONS (2)
  - Drug intolerance [Unknown]
  - Drug hypersensitivity [Unknown]
